FAERS Safety Report 19597376 (Version 1)
Quarter: 2021Q3

REPORT INFORMATION
  Report Type: Spontaneous
  Country: US (occurrence: US)
  Receive Date: 20210723
  Receipt Date: 20210723
  Transmission Date: 20211014
  Serious: Yes (Other)
  Sender: FDA-Public Use
  Company Number: US-CIPLA LTD.-2021US05043

PATIENT

DRUGS (1)
  1. BUDESONIDE. [Suspect]
     Active Substance: BUDESONIDE
     Indication: COLITIS
     Dosage: UNK
     Route: 065

REACTIONS (6)
  - Therapy non-responder [Unknown]
  - Urinary incontinence [Recovered/Resolved]
  - Impaired quality of life [Unknown]
  - Defaecation urgency [Recovered/Resolved]
  - Diarrhoea [Recovered/Resolved]
  - Adverse drug reaction [Unknown]
